FAERS Safety Report 14169332 (Version 3)
Quarter: 2017Q4

REPORT INFORMATION
  Report Type: Spontaneous
  Country: IN (occurrence: IN)
  Receive Date: 20171108
  Receipt Date: 20171129
  Transmission Date: 20180321
  Serious: Yes (Death, Hospitalization, Other)
  Sender: FDA-Public Use
  Company Number: IN-AMGEN-INDSP2017090288

PATIENT
  Age: 56 Year
  Sex: Female

DRUGS (1)
  1. VECTIBIX [Suspect]
     Active Substance: PANITUMUMAB
     Indication: COLORECTAL CANCER METASTATIC
     Dosage: 100 MG, UNK
     Route: 042
     Dates: start: 20170218

REACTIONS (8)
  - Death [Fatal]
  - Cerebral disorder [Unknown]
  - Dehydration [Recovered/Resolved]
  - Asthenia [Unknown]
  - Liver disorder [Unknown]
  - Dyspnoea [Unknown]
  - Coma [Unknown]
  - Jaundice [Unknown]

NARRATIVE: CASE EVENT DATE: 20170531
